FAERS Safety Report 9466947 (Version 2)
Quarter: 2013Q3

REPORT INFORMATION
  Report Type: Spontaneous
  Country: US (occurrence: US)
  Receive Date: 20130820
  Receipt Date: 20130823
  Transmission Date: 20140515
  Serious: Yes (Other)
  Sender: FDA-Public Use
  Company Number: US-GILEAD-2013-0081503

PATIENT
  Sex: Female

DRUGS (3)
  1. LETAIRIS [Suspect]
     Indication: PULMONARY HYPERTENSION
     Dosage: 10 MG, QD
     Dates: start: 20070822
  2. LETAIRIS [Suspect]
     Indication: RHEUMATOID ARTHRITIS
  3. REVATIO [Concomitant]

REACTIONS (2)
  - Hip fracture [Unknown]
  - Back injury [Unknown]
